FAERS Safety Report 5999535-X (Version None)
Quarter: 2008Q4

REPORT INFORMATION
  Report Type: 
  Country: None (occurrence: None)
  Receive Date: 20081211
  Receipt Date: 20081211
  Transmission Date: 20090506
  Serious: Yes (Hospitalization, Other)
  Sender: FDA-Public Use
  Company Number: None

PATIENT
  Sex: Male
  Weight: 124.7392 kg

DRUGS (1)
  1. ABILIFY [Suspect]
     Indication: BIPOLAR I DISORDER
     Dosage: 5MG ONCE DAILY VA
     Dates: start: 20070328, end: 20080512

REACTIONS (3)
  - CEREBROVASCULAR ACCIDENT [None]
  - DYSKINESIA [None]
  - PAIN [None]
